FAERS Safety Report 24375119 (Version 1)
Quarter: 2024Q3

REPORT INFORMATION
  Report Type: Spontaneous
  Country: PL (occurrence: PL)
  Receive Date: 20240928
  Receipt Date: 20240928
  Transmission Date: 20241017
  Serious: Yes (Other)
  Sender: SANDOZ
  Company Number: PL-002147023-NVSC2023PL139933

PATIENT
  Age: 60 Year
  Sex: Female

DRUGS (5)
  1. LETROZOLE [Suspect]
     Active Substance: LETROZOLE
     Indication: Product used for unknown indication
     Dosage: 2.5 MG, QD (1X1 TABLE FOR DAYS 1-28)
     Route: 065
  2. RIBOCICLIB [Suspect]
     Active Substance: RIBOCICLIB
     Dosage: 400 MG, QD (1 X 400 MG)
     Route: 065
     Dates: start: 202008
  3. RIBOCICLIB [Suspect]
     Active Substance: RIBOCICLIB
     Indication: Breast cancer
     Dosage: 600 MG QD (3 TABLES/ ONCE A DAY/ FOR 21 DAYS)
     Route: 065
     Dates: start: 20200410
  4. ZOLEDRONIC ACID [Suspect]
     Active Substance: ZOLEDRONIC ACID
     Dosage: 4 MG EVERY 12 WEEKS
     Route: 042
  5. ZOLEDRONIC ACID [Suspect]
     Active Substance: ZOLEDRONIC ACID
     Indication: Breast cancer
     Dosage: UNK UNK, QD
     Route: 042

REACTIONS (4)
  - Neutropenia [Unknown]
  - Metastases to bone [Unknown]
  - Haematotoxicity [Unknown]
  - Periprostatic venous plexus dilatation [Unknown]

NARRATIVE: CASE EVENT DATE: 20200701
